FAERS Safety Report 18818135 (Version 10)
Quarter: 2021Q3

REPORT INFORMATION
  Report Type: Spontaneous
  Country: US (occurrence: US)
  Receive Date: 20210202
  Receipt Date: 20210716
  Transmission Date: 20211014
  Serious: Yes (Hospitalization, Other)
  Sender: FDA-Public Use
  Company Number: US-BEH-2021127721

PATIENT
  Age: 17 Year
  Sex: Male

DRUGS (10)
  1. IDELVION [Suspect]
     Active Substance: COAGULATION FACTOR IX RECOMBINANT HUMAN
     Indication: PROPHYLAXIS
     Dosage: 6000 INTERNATIONAL UNIT, QW
     Route: 042
     Dates: start: 20210223
  2. IDELVION [Suspect]
     Active Substance: COAGULATION FACTOR IX RECOMBINANT HUMAN
     Dosage: 5837 INTERNATIONAL UNIT, QW
     Route: 042
     Dates: start: 20190114
  3. IDELVION [Suspect]
     Active Substance: COAGULATION FACTOR IX RECOMBINANT HUMAN
     Dosage: 6000 INTERNATIONAL UNIT, QW
     Route: 042
     Dates: start: 202106
  4. IDELVION [Suspect]
     Active Substance: COAGULATION FACTOR IX RECOMBINANT HUMAN
     Dosage: 5837 INTERNATIONAL UNIT, QW
     Route: 042
     Dates: start: 20190114
  5. IDELVION [Suspect]
     Active Substance: COAGULATION FACTOR IX RECOMBINANT HUMAN
     Dosage: 6000 INTERNATIONAL UNIT, QW
     Route: 042
     Dates: start: 202106
  6. IDELVION [Suspect]
     Active Substance: COAGULATION FACTOR IX RECOMBINANT HUMAN
     Indication: FACTOR IX DEFICIENCY
     Dosage: 6000 INTERNATIONAL UNIT, QW
     Route: 042
     Dates: start: 201901
  7. IDELVION [Suspect]
     Active Substance: COAGULATION FACTOR IX RECOMBINANT HUMAN
     Indication: FACTOR IX DEFICIENCY
     Dosage: 6000 INTERNATIONAL UNIT, QW
     Route: 042
     Dates: start: 20210123
  8. IDELVION [Suspect]
     Active Substance: COAGULATION FACTOR IX RECOMBINANT HUMAN
     Indication: FACTOR IX DEFICIENCY
     Dosage: 6000 INTERNATIONAL UNIT, QW
     Route: 042
     Dates: start: 20210123
  9. IDELVION [Suspect]
     Active Substance: COAGULATION FACTOR IX RECOMBINANT HUMAN
     Indication: PROPHYLAXIS
     Dosage: 6000 INTERNATIONAL UNIT, QW
     Route: 042
     Dates: start: 20210223
  10. IDELVION [Suspect]
     Active Substance: COAGULATION FACTOR IX RECOMBINANT HUMAN
     Indication: FACTOR IX DEFICIENCY
     Dosage: 6000 INTERNATIONAL UNIT, QW
     Route: 042
     Dates: start: 201901

REACTIONS (5)
  - Renal haemorrhage [Unknown]
  - Haemorrhage [Unknown]
  - Muscle haemorrhage [Recovering/Resolving]
  - Haemorrhage [Unknown]
  - Haemorrhage [Unknown]

NARRATIVE: CASE EVENT DATE: 20210115
